FAERS Safety Report 8781780 (Version 2)
Quarter: 2013Q4

REPORT INFORMATION
  Report Type: Spontaneous
  Country: US (occurrence: US)
  Receive Date: 20120913
  Receipt Date: 20131031
  Transmission Date: 20140711
  Serious: Yes (Hospitalization)
  Sender: FDA-Public Use
  Company Number: US-009507513-1209USA003694

PATIENT
  Sex: Male

DRUGS (7)
  1. ISENTRESS [Suspect]
     Dosage: 800 MG, QD
     Route: 048
  2. CELSENTRI [Suspect]
     Dosage: 300 MG, QD
     Route: 048
  3. RECOMBINANT HUMAN INTERLEUKIN-2 (125ALA) [Suspect]
     Dosage: UNK
     Route: 058
  4. KIVEXA [Concomitant]
     Dosage: 1 DF, QD
  5. PREZISTA [Concomitant]
     Dosage: 800 MG, QD
     Route: 048
  6. ASPEGIC [Concomitant]
     Dosage: 100 MG, QD
  7. NORVIR [Concomitant]
     Dosage: 100 MG, QD
     Route: 048

REACTIONS (5)
  - Deep vein thrombosis [Unknown]
  - Nausea [Unknown]
  - Pain in extremity [Unknown]
  - Asthenia [Unknown]
  - Oedema peripheral [Unknown]
